FAERS Safety Report 9248469 (Version 1)
Quarter: 2013Q1

REPORT INFORMATION
  Report Type: Spontaneous
  Country: US (occurrence: None)
  Receive Date: 20130305
  Receipt Date: 20130305
  Transmission Date: 20140127
  Serious: Yes (Other)
  Sender: FDA-Public Use
  Company Number: 163-21880-12092860

PATIENT
  Age: 64 Year
  Sex: Female
  Weight: 65.3 kg

DRUGS (12)
  1. REVLIMID (LENALIDOMIDE) (CAPSULES) [Suspect]
     Indication: AMYLOIDOSIS
     Dosage: 7 CYCLES, PO
     Dates: start: 20101108, end: 20110710
  2. DEXAMETHASONE (DEXAMETHASONE) [Suspect]
     Indication: AMYLOIDOSIS
     Dosage: UNKNOWN, UNK
     Dates: start: 20101108, end: 20110710
  3. SODIUM BICARBONATE [Concomitant]
  4. LASIX (FUROSEMIDE) [Concomitant]
  5. MELPHALAN [Suspect]
     Indication: AMYLOIDOSIS
     Dosage: 7 CYCLES, PO
     Dates: start: 20101108, end: 20110710
  6. SIMVASTATIN (SIMVASTATIN) [Concomitant]
  7. PRILOSEC [Concomitant]
  8. LEVOXYL [Concomitant]
  9. ASPIRIN [Concomitant]
  10. CITALOPRAM HYDROBROMIDE [Concomitant]
  11. GABAPENTIN (GABAPENTIN) [Concomitant]
  12. ALDACTONE (SPIRONOLACTONE) [Concomitant]

REACTIONS (1)
  - Pancytopenia [None]
